FAERS Safety Report 8369036-2 (Version None)
Quarter: 2012Q2

REPORT INFORMATION
  Report Type: 
  Country: None (occurrence: None)
  Receive Date: 20120518
  Receipt Date: 20120514
  Transmission Date: 20120825
  Serious: Yes (Hospitalization)
  Sender: FDA-Public Use
  Company Number: DE-ROCHE-1057897

PATIENT
  Age: 51 Year
  Sex: Female
  Weight: 97.7 kg

DRUGS (2)
  1. VEMURAFENIB [Suspect]
     Dosage: DOSE REDUCED
     Route: 048
     Dates: start: 20120417
  2. VEMURAFENIB [Suspect]
     Indication: MALIGNANT MELANOMA
     Route: 048
     Dates: start: 20120308, end: 20120405

REACTIONS (1)
  - ELECTROLYTE IMBALANCE [None]
